FAERS Safety Report 16304247 (Version 2)
Quarter: 2019Q2

REPORT INFORMATION
  Report Type: Report from Study
  Country: BR (occurrence: BR)
  Receive Date: 20190513
  Receipt Date: 20190628
  Transmission Date: 20190711
  Serious: Yes (Hospitalization)
  Sender: FDA-Public Use
  Company Number: BR-AMREGENT-20190943

PATIENT
  Age: 57 Year
  Sex: Male
  Weight: 100 kg

DRUGS (10)
  1. ROSUVASTATIN. [Concomitant]
     Active Substance: ROSUVASTATIN
     Dosage: 20 MG, 1 IN 1D
     Route: 048
     Dates: start: 2018
  2. BISOPROLOL [Concomitant]
     Active Substance: BISOPROLOL
     Dosage: 10 MG, 1 IN 1 D
     Route: 048
     Dates: start: 2016
  3. OMEPRAZOLE. [Concomitant]
     Active Substance: OMEPRAZOLE
     Dosage: 20 MG, 1 IN 1D
     Route: 048
     Dates: start: 2018
  4. EZETIMIBE. [Concomitant]
     Active Substance: EZETIMIBE
     Dosage: 10 MG, 1 IN 1D
     Route: 048
     Dates: start: 2018
  5. INSULIN [Concomitant]
     Active Substance: INSULIN NOS
     Dosage: 60 IU, (20 IU 3 IN 1D)
     Route: 058
     Dates: start: 2004
  6. FERINJECT [Suspect]
     Active Substance: FERRIC CARBOXYMALTOSE
     Dosage: 10 ML
     Route: 040
     Dates: start: 20190204, end: 20190204
  7. SPIRONOLACTONE. [Concomitant]
     Active Substance: SPIRONOLACTONE
     Dosage: 25 MG , 1 IN 1D
     Route: 048
     Dates: start: 2015
  8. ENALAPRIL [Concomitant]
     Active Substance: ENALAPRIL
     Dosage: 20 MG (10 MG, 2 IN 1D)
     Route: 048
     Dates: start: 2004
  9. WARFARIN [Concomitant]
     Active Substance: WARFARIN
     Dosage: 5 MG, 1 IN 1D
     Route: 048
     Dates: start: 2016
  10. FUROSEMIDE. [Concomitant]
     Active Substance: FUROSEMIDE
     Dosage: 80 MG (40 MG, 2 IN 1D)
     Route: 048
     Dates: start: 2016

REACTIONS (1)
  - Varicose ulceration [Unknown]

NARRATIVE: CASE EVENT DATE: 20190326
